FAERS Safety Report 15576186 (Version 1)
Quarter: 2018Q4

REPORT INFORMATION
  Report Type: Spontaneous
  Country: US (occurrence: US)
  Receive Date: 20181101
  Receipt Date: 20181101
  Transmission Date: 20190205
  Serious: No
  Sender: FDA-Public Use
  Company Number: US-B.I. PHARMACEUTICALS,INC./RIDGEFIELD-2018-BI-052225

PATIENT
  Age: 65 Year
  Sex: Male

DRUGS (2)
  1. COMBIVENT [Suspect]
     Active Substance: ALBUTEROL SULFATE\IPRATROPIUM BROMIDE
     Indication: RESPIRATORY TRACT INFECTION BACTERIAL
     Dosage: 1 PUFF 4 TIMES A DAY;   20 MCG / 100 MCG; INHALATION SPRAY? YES ?ACTION TAKEN DRUG WITHDRAWN
     Route: 055
     Dates: start: 201610, end: 201610
  2. COMBIVENT [Suspect]
     Active Substance: ALBUTEROL SULFATE\IPRATROPIUM BROMIDE
     Dosage: ONE PUFF 4 TIMES A DAY; 20 MCG / 100 MCG; INHALATION SPRAY?YES ?ACTION TAKEN DOSE NOT CHANGED
     Route: 055
     Dates: start: 20181016

REACTIONS (2)
  - Respiratory tract infection bacterial [Not Recovered/Not Resolved]
  - Off label use [Unknown]

NARRATIVE: CASE EVENT DATE: 201610
